FAERS Safety Report 12187639 (Version 1)
Quarter: 2016Q1

REPORT INFORMATION
  Report Type: Spontaneous
  Country: US (occurrence: None)
  Receive Date: 20160316
  Receipt Date: 20160316
  Transmission Date: 20160526
  Serious: Yes (Hospitalization)
  Sender: FDA-Public Use
  Company Number: None

PATIENT
  Age: 68 Year
  Sex: Male
  Weight: 115.8 kg

DRUGS (1)
  1. LISINOPRIL. [Suspect]
     Active Substance: LISINOPRIL
     Indication: HYPERTENSION
     Route: 048
     Dates: start: 20031008, end: 20151002

REACTIONS (6)
  - Dysphonia [None]
  - Drug hypersensitivity [None]
  - Angioedema [None]
  - Dysphagia [None]
  - Food allergy [None]
  - Oropharyngeal swelling [None]

NARRATIVE: CASE EVENT DATE: 20151027
